FAERS Safety Report 9209441 (Version 1)
Quarter: 2013Q1

REPORT INFORMATION
  Report Type: Spontaneous
  Country: US (occurrence: None)
  Receive Date: 20120820
  Receipt Date: 20120820
  Transmission Date: 20140127
  Serious: No
  Sender: FDA-Public Use
  Company Number: 1000030507

PATIENT
  Age: 65 Year
  Sex: Female

DRUGS (8)
  1. VIIBRYD (VILAZODONE) (10 MILLIGRAM TABLETS) [Suspect]
     Route: 048
     Dates: start: 201203
  2. LEVOTHYROXINE (LEVOTHYROXINE SODIUM) (LEVOTHYROXINE SODIUM) [Concomitant]
  3. LISINOPRIL (LISINOPRIL) (LISINOPRIL) [Concomitant]
  4. DILTIAZEM (DILTIAZEM HYDROCHLORIDE) (DILTIAZEM HYDROCHLORIDE) [Concomitant]
  5. WARFARIN (WARFARIN) (WARFARIN) [Concomitant]
  6. JANUMET (SITAGLIPTIN, METFORMIN) (SITAGLIPTIN, METFORMIN) [Concomitant]
  7. BUPROPION (BUPROPION) (BUPROPION) [Concomitant]
  8. ATORVASTATIN (ATORVASTATIN) (ASTORVASTATIN) [Concomitant]

REACTIONS (1)
  - Dysuria [None]
